FAERS Safety Report 4508057-4 (Version None)
Quarter: 2004Q4

REPORT INFORMATION
  Report Type: 
  Country: None (occurrence: None)
  Receive Date: 20041123
  Receipt Date: 20031003
  Transmission Date: 20050328
  Serious: No
  Sender: FDA-Public Use
  Company Number: US-GLAXOSMITHKLINE-A0428729A

PATIENT
  Sex: Female

DRUGS (2)
  1. WELLBUTRIN [Suspect]
     Indication: DEPRESSION
     Route: 048
  2. UNKNOWN-OTC MEDICATION [Concomitant]

REACTIONS (4)
  - DRUG INTERACTION [None]
  - FATIGUE [None]
  - STOMACH DISCOMFORT [None]
  - TUNNEL VISION [None]
